FAERS Safety Report 7203804-5 (Version None)
Quarter: 2010Q4

REPORT INFORMATION
  Report Type: 
  Country: None (occurrence: None)
  Receive Date: 20101230
  Receipt Date: 20101216
  Transmission Date: 20110411
  Serious: Yes (Other)
  Sender: FDA-Public Use
  Company Number: US-BAXTER-2010BH029237

PATIENT
  Sex: Male

DRUGS (4)
  1. DIANEAL [Suspect]
     Indication: PERITONEAL DIALYSIS
     Route: 033
     Dates: start: 20100920, end: 20101129
  2. DIANEAL [Suspect]
     Route: 033
     Dates: start: 20100920, end: 20101129
  3. DIANEAL [Suspect]
     Indication: PERITONEAL DIALYSIS
     Route: 033
     Dates: start: 20100920, end: 20100101
  4. DIANEAL [Suspect]
     Route: 033
     Dates: start: 20100920, end: 20100101

REACTIONS (2)
  - HERNIA [None]
  - SCROTAL OEDEMA [None]
